FAERS Safety Report 5989128-2 (Version None)
Quarter: 2008Q4

REPORT INFORMATION
  Report Type: 
  Country: None (occurrence: None)
  Receive Date: 20081210
  Receipt Date: 20081126
  Transmission Date: 20090506
  Serious: Yes (Hospitalization)
  Sender: FDA-Public Use
  Company Number: US-WATSON-2008-07046

PATIENT
  Age: 46 Year
  Sex: Male

DRUGS (1)
  1. PREDNISONE TAB [Suspect]
     Indication: PULMONARY SARCOIDOSIS
     Dosage: 40 MG, DAILY
     Route: 048

REACTIONS (5)
  - ACUTE CHEST SYNDROME [None]
  - APHASIA [None]
  - COGNITIVE DISORDER [None]
  - RESPIRATORY FAILURE [None]
  - VASCULAR OCCLUSION [None]
